FAERS Safety Report 20621845 (Version 1)
Quarter: 2022Q1

REPORT INFORMATION
  Report Type: Spontaneous
  Country: US (occurrence: US)
  Receive Date: 20220322
  Receipt Date: 20220322
  Transmission Date: 20220423
  Serious: No
  Sender: FDA-Public Use
  Company Number: US-NOVOPROD-891006

PATIENT
  Sex: Female

DRUGS (1)
  1. WEGOVY [Suspect]
     Active Substance: SEMAGLUTIDE
     Indication: Product used for unknown indication
     Dosage: 0.5 DOSE  BUT USES 0.25 TWICE TO GET 0.5 DOSE
     Route: 058
     Dates: start: 202109

REACTIONS (3)
  - Injection site extravasation [Unknown]
  - Product communication issue [Unknown]
  - Device malfunction [Unknown]
